FAERS Safety Report 8454196-5 (Version None)
Quarter: 2012Q2

REPORT INFORMATION
  Report Type: 
  Country: None (occurrence: None)
  Receive Date: 20120620
  Receipt Date: 20120614
  Transmission Date: 20120825
  Serious: Yes (Hospitalization)
  Sender: FDA-Public Use
  Company Number: US-ROCHE-1078919

PATIENT
  Sex: Male

DRUGS (1)
  1. XELODA [Suspect]
     Indication: OESOPHAGEAL CANCER METASTATIC
     Route: 048
     Dates: start: 20111106

REACTIONS (2)
  - OESOPHAGEAL STENT INSERTION [None]
  - SPEECH DISORDER [None]
